FAERS Safety Report 22072831 (Version 1)
Quarter: 2023Q1

REPORT INFORMATION
  Report Type: Spontaneous
  Country: US (occurrence: US)
  Receive Date: 20230308
  Receipt Date: 20230308
  Transmission Date: 20230417
  Serious: No
  Sender: FDA-Public Use
  Company Number: US-BRISTOL-MYERS SQUIBB COMPANY-2023-032666

PATIENT
  Age: 65 Year
  Sex: Male
  Weight: 109.3 kg

DRUGS (2)
  1. OPDIVO [Suspect]
     Active Substance: NIVOLUMAB
     Indication: Mesothelioma
     Dosage: FREQ : 42 DAY CYCLE
     Route: 042
     Dates: start: 20220222
  2. YERVOY [Suspect]
     Active Substance: IPILIMUMAB
     Indication: Mesothelioma
     Dosage: FREQ : 42 DAY CYCLE
     Route: 042
     Dates: start: 20220222

REACTIONS (2)
  - Blood pressure increased [Unknown]
  - Off label use [Unknown]
